FAERS Safety Report 6896933-7 (Version None)
Quarter: 2010Q3

REPORT INFORMATION
  Report Type: 
  Country: None (occurrence: None)
  Receive Date: 20100802
  Receipt Date: 20070316
  Transmission Date: 20110219
  Serious: Yes (Other)
  Sender: FDA-Public Use
  Company Number: US-PFIZER INC-2007022427

PATIENT
  Sex: Female
  Weight: 93.4 kg

DRUGS (6)
  1. LYRICA [Suspect]
     Indication: NEURALGIA
     Dates: start: 20061101
  2. AXID [Concomitant]
  3. CLARINEX [Concomitant]
  4. INDERAL [Concomitant]
  5. LIPITOR [Concomitant]
     Indication: BLOOD CHOLESTEROL INCREASED
  6. MESNEX [Concomitant]

REACTIONS (1)
  - WEIGHT INCREASED [None]
